FAERS Safety Report 13726655 (Version 2)
Quarter: 2017Q3

REPORT INFORMATION
  Report Type: Spontaneous
  Country: US (occurrence: US)
  Receive Date: 20170707
  Receipt Date: 20170710
  Transmission Date: 20171127
  Serious: Yes (Other)
  Sender: FDA-Public Use
  Company Number: US-PFIZER INC-2017293451

PATIENT
  Age: 57 Year
  Sex: Male
  Weight: 102 kg

DRUGS (12)
  1. LYRICA [Suspect]
     Active Substance: PREGABALIN
     Indication: NERVOUS SYSTEM DISORDER
  2. BACLOFEN. [Concomitant]
     Active Substance: BACLOFEN
     Indication: MUSCLE RELAXANT THERAPY
     Dosage: 30 MG, DAILY
     Dates: start: 2013
  3. CYCLOBENZAPRINE. [Concomitant]
     Active Substance: CYCLOBENZAPRINE
     Indication: SLEEP DISORDER
     Dosage: 30 MG, DAILY
     Dates: start: 2013
  4. LYRICA [Suspect]
     Active Substance: PREGABALIN
     Indication: INSOMNIA
     Dosage: 25 MG, UNK
     Dates: start: 201604
  5. CLONIDINE. [Concomitant]
     Active Substance: CLONIDINE
     Indication: SLEEP DISORDER
     Dosage: 0.1 MG, DAILY
     Dates: start: 2013
  6. QUETIAPINE. [Concomitant]
     Active Substance: QUETIAPINE
     Indication: INSOMNIA
     Dosage: 200 MG, DAILY
     Dates: start: 2015
  7. LAMICTAL [Concomitant]
     Active Substance: LAMOTRIGINE
     Indication: DEPRESSION
     Dosage: 150 MG, DAILY
     Dates: start: 2013
  8. ADDERALL XR [Concomitant]
     Active Substance: AMPHETAMINE ASPARTATE\AMPHETAMINE SULFATE\DEXTROAMPHETAMINE SACCHARATE\DEXTROAMPHETAMINE SULFATE
     Indication: ATTENTION DEFICIT/HYPERACTIVITY DISORDER
     Dosage: 50 MG, DAILY
     Dates: start: 1999
  9. LYRICA [Suspect]
     Active Substance: PREGABALIN
     Indication: ANXIETY
     Dosage: 400 MG, DAILY; HE WAS TAKING AS MUCH AS 400 MG A DAY
  10. LYRICA [Suspect]
     Active Substance: PREGABALIN
     Indication: SENSORY LOSS
     Dosage: 150MG IN THE MORNING, 75MG IN THE AFTERNOON AND IN THE EVENING
     Route: 048
  11. ESZOPICLONE. [Concomitant]
     Active Substance: ESZOPICLONE
     Indication: INSOMNIA
     Dosage: 3 MG, UNK
     Dates: start: 2015
  12. BUPROPION. [Concomitant]
     Active Substance: BUPROPION
     Indication: DEPRESSION
     Dosage: 450 MG, UNK
     Dates: start: 1999

REACTIONS (7)
  - Pre-existing condition improved [Unknown]
  - Panic attack [Unknown]
  - Nervous system disorder [Unknown]
  - Product use in unapproved indication [Unknown]
  - Therapeutic response unexpected [Unknown]
  - Drug dependence [Unknown]
  - Withdrawal syndrome [Unknown]

NARRATIVE: CASE EVENT DATE: 201604
